FAERS Safety Report 10261294 (Version 1)
Quarter: 2014Q2

REPORT INFORMATION
  Report Type: Report from Study
  Country: CA (occurrence: CA)
  Receive Date: 20140626
  Receipt Date: 20140626
  Transmission Date: 20141212
  Serious: Yes (Other)
  Sender: FDA-Public Use
  Company Number: CA-JNJFOC-20140614276

PATIENT
  Age: 31 Year
  Sex: Female
  Weight: 123 kg

DRUGS (2)
  1. REMICADE [Suspect]
     Indication: PSORIATIC ARTHROPATHY
     Dosage: EVERY 5-6 WEEK
     Route: 042
     Dates: start: 20140528, end: 20140528
  2. REMICADE [Suspect]
     Indication: PSORIATIC ARTHROPATHY
     Dosage: EVERY 5-6 WEEK
     Route: 042
     Dates: start: 20071217

REACTIONS (3)
  - Arrhythmia [Unknown]
  - Hypoaesthesia [Unknown]
  - Infusion related reaction [Unknown]
